FAERS Safety Report 12297461 (Version 1)
Quarter: 2016Q2

REPORT INFORMATION
  Report Type: Report from Study
  Country: BR (occurrence: BR)
  Receive Date: 20160422
  Receipt Date: 20160422
  Transmission Date: 20160815
  Serious: Yes (Other)
  Sender: FDA-Public Use
  Company Number: BR-BAYER-2016-070574

PATIENT
  Age: 27 Year
  Sex: Female

DRUGS (1)
  1. BETAFERON [Suspect]
     Active Substance: INTERFERON BETA-1B
     Indication: MULTIPLE SCLEROSIS
     Dosage: 1.2 ML, QOD
     Route: 058
     Dates: start: 2008, end: 2015

REACTIONS (14)
  - Malaise [Recovered/Resolved]
  - Nausea [Recovered/Resolved]
  - Bedridden [Recovered/Resolved]
  - Injection site pain [Recovered/Resolved]
  - Intentional product misuse [None]
  - Skin discolouration [Recovered/Resolved]
  - Pyrexia [Recovered/Resolved]
  - Pain [Recovered/Resolved]
  - Rash papular [Recovered/Resolved]
  - Headache [Recovered/Resolved]
  - Eye pain [Recovered/Resolved]
  - Haematoma [Recovered/Resolved]
  - Musculoskeletal pain [Not Recovered/Not Resolved]
  - Product use issue [None]

NARRATIVE: CASE EVENT DATE: 2008
